FAERS Safety Report 13318388 (Version 1)
Quarter: 2017Q1

REPORT INFORMATION
  Report Type: Spontaneous
  Country: US (occurrence: US)
  Receive Date: 20170310
  Receipt Date: 20170310
  Transmission Date: 20170428
  Serious: No
  Sender: FDA-Public Use
  Company Number: US-BAYER-2017-041888

PATIENT
  Age: 3 Year
  Sex: Female

DRUGS (1)
  1. MIRALAX [Suspect]
     Active Substance: POLYETHYLENE GLYCOL 3350
     Indication: CONSTIPATION
     Dosage: UNK

REACTIONS (8)
  - Aggression [None]
  - Paranoia [None]
  - Obsessive-compulsive disorder [None]
  - Abnormal behaviour [None]
  - Product use issue [None]
  - Mood swings [None]
  - Anger [None]
  - Feeling abnormal [None]
